FAERS Safety Report 25924646 (Version 1)
Quarter: 2025Q4

REPORT INFORMATION
  Report Type: Report from Study
  Country: US (occurrence: US)
  Receive Date: 20251015
  Receipt Date: 20251015
  Transmission Date: 20260117
  Serious: Yes (Other)
  Sender: ABBVIE
  Company Number: US-ABBVIE-6500952

PATIENT
  Age: 54 Year
  Sex: Female

DRUGS (1)
  1. SKYRIZI [Suspect]
     Active Substance: RISANKIZUMAB-RZAA
     Indication: Psoriatic arthropathy
     Dosage: TIME INTERVAL: TOTAL: STRENGTH: 150MG/ML?WEEK 0
     Route: 058
     Dates: start: 20250925

REACTIONS (2)
  - Postoperative wound infection [Unknown]
  - Incision site pain [Unknown]

NARRATIVE: CASE EVENT DATE: 20250101
